FAERS Safety Report 9461665 (Version 1)
Quarter: 2013Q3

REPORT INFORMATION
  Report Type: Spontaneous
  Country: US (occurrence: None)
  Receive Date: 20130815
  Receipt Date: 20130815
  Transmission Date: 20140515
  Serious: Yes (Hospitalization)
  Sender: FDA-Public Use
  Company Number: None

PATIENT
  Age: 34 Year
  Sex: Male
  Weight: 102.06 kg

DRUGS (3)
  1. ABILIFY [Suspect]
     Indication: POST-TRAUMATIC STRESS DISORDER
     Dosage: 1-2 PILLS AT BEDTIME TAKEN BY MOUTH
     Route: 048
     Dates: start: 20130612, end: 20130710
  2. METOPROLOL [Concomitant]
  3. ASPIRIN [Concomitant]

REACTIONS (3)
  - Swelling face [None]
  - Lip swelling [None]
  - Dysarthria [None]
